FAERS Safety Report 6154242-8 (Version None)
Quarter: 2009Q2

REPORT INFORMATION
  Report Type: 
  Country: None (occurrence: None)
  Receive Date: 20090410
  Receipt Date: 20090331
  Transmission Date: 20091009
  Serious: Yes (Death)
  Sender: FDA-Public Use
  Company Number: FABR-1000731

PATIENT
  Age: 52 Year
  Sex: Male
  Weight: 70 kg

DRUGS (7)
  1. FABRAZYME [Suspect]
     Indication: FABRY'S DISEASE
     Dosage: 70 MG/KG, Q2W, INTRAVENOUS
     Route: 042
     Dates: start: 20041101, end: 20090311
  2. ROCALTROL [Concomitant]
  3. OMEPRAZOLE [Concomitant]
  4. CALCIUM CARBONATE (CALCIUM CARBONATE) [Concomitant]
  5. ACIDUM FOLICUM (FOLIC ACID) [Concomitant]
  6. ATORVASTATIN CALCIUM [Concomitant]
  7. ZOLOFT [Concomitant]

REACTIONS (5)
  - CARDIAC FAILURE [None]
  - CARDIOGENIC SHOCK [None]
  - CORONARY ARTERY BYPASS [None]
  - MITRAL VALVE REPLACEMENT [None]
  - POST PROCEDURAL COMPLICATION [None]
